FAERS Safety Report 18348382 (Version 1)
Quarter: 2020Q4

REPORT INFORMATION
  Report Type: Spontaneous
  Country: US (occurrence: US)
  Receive Date: 20201005
  Receipt Date: 20201005
  Transmission Date: 20210114
  Serious: Yes (Life-Threatening, Hospitalization)
  Sender: FDA-Public Use
  Company Number: None

PATIENT
  Age: 62 Year
  Sex: Female
  Weight: 56.25 kg

DRUGS (2)
  1. BISACODYL. [Concomitant]
     Active Substance: BISACODYL
  2. DESMOPRESSIN ACETATE NASAL SPRAY 10 MCG PER 0.1 ML [Suspect]
     Active Substance: DESMOPRESSIN ACETATE
     Indication: HAEMORRHAGE PROPHYLAXIS
     Dosage: ?          OTHER STRENGTH:MCG PER 0.1 ML;QUANTITY:3 SPRAY(S);OTHER FREQUENCY:Q12 HRS X 3 DOSES;OTHER ROUTE:SPRAYED INTO THE NOSE?
     Route: 045
     Dates: start: 20200707, end: 20200708

REACTIONS (8)
  - Product measured potency issue [None]
  - Dizziness [None]
  - Recalled product administered [None]
  - Asthenia [None]
  - Nausea [None]
  - Vomiting [None]
  - Headache [None]
  - Hyponatraemia [None]

NARRATIVE: CASE EVENT DATE: 20200708
